FAERS Safety Report 6876858-3 (Version None)
Quarter: 2010Q3

REPORT INFORMATION
  Report Type: 
  Country: None (occurrence: None)
  Receive Date: 20100727
  Receipt Date: 20100720
  Transmission Date: 20110219
  Serious: Yes (Death)
  Sender: FDA-Public Use
  Company Number: TH-B.I. PHARMACEUTICALS,INC./RIDGEFIELD-2010-DE-03856GD

PATIENT

DRUGS (4)
  1. NEVIRAPINE [Suspect]
     Indication: HIV INFECTION
     Dosage: 400 MG
  2. STAVUDINE [Suspect]
     Indication: HIV INFECTION
  3. LAMIVUDINE [Suspect]
     Indication: HIV INFECTION
  4. RIFAMPICIN [Suspect]
     Indication: TUBERCULOSIS

REACTIONS (1)
  - TUBERCULOSIS [None]
